FAERS Safety Report 11720674 (Version 1)
Quarter: 2015Q4

REPORT INFORMATION
  Report Type: Spontaneous
  Country: US (occurrence: US)
  Receive Date: 20151110
  Receipt Date: 20151110
  Transmission Date: 20160304
  Serious: No
  Sender: FDA-Public Use
  Company Number: US-NEPHRON PHARMACEUTICALS CORPORATION-1044027

PATIENT
  Age: 81 Year
  Sex: Male
  Weight: 97.73 kg

DRUGS (1)
  1. ALBUTEROL SULFATE INHALATION SOLUTION, 0.083% [Suspect]
     Active Substance: ALBUTEROL SULFATE
     Indication: BRONCHITIS
     Route: 055
     Dates: start: 20150504, end: 20150511

REACTIONS (1)
  - Glossodynia [Recovering/Resolving]

NARRATIVE: CASE EVENT DATE: 20150508
